FAERS Safety Report 8790748 (Version 1)
Quarter: 2012Q4

REPORT INFORMATION
  Report Type: Spontaneous
  Country: DE (occurrence: None)
  Receive Date: 20120911
  Receipt Date: 20120911
  Transmission Date: 20130627
  Serious: Yes (Other)
  Sender: FDA-Public Use
  Company Number: LOC-00995

PATIENT
  Age: 39 Year

DRUGS (1)
  1. LACTIC ACID [Suspect]
     Indication: ITCHING
     Route: 061
     Dates: start: 20111201, end: 20111203

REACTIONS (1)
  - Hypersensitivity [None]
